FAERS Safety Report 9677803 (Version 1)
Quarter: 2013Q4

REPORT INFORMATION
  Report Type: Spontaneous
  Country: US (occurrence: None)
  Receive Date: 20131107
  Receipt Date: 20131107
  Transmission Date: 20140711
  Serious: Yes (Hospitalization)
  Sender: FDA-Public Use
  Company Number: None

PATIENT
  Age: 95 Year
  Sex: Female
  Weight: 55.7 kg

DRUGS (1)
  1. XARELTO [Suspect]
     Indication: ARRHYTHMIA
     Dosage: 1 TABLET, QD, ORAL
     Route: 048
     Dates: start: 20130902

REACTIONS (1)
  - Pulmonary embolism [None]
